FAERS Safety Report 12085106 (Version 9)
Quarter: 2016Q4

REPORT INFORMATION
  Report Type: Report from Study
  Country: US (occurrence: US)
  Receive Date: 20160217
  Receipt Date: 20161014
  Transmission Date: 20170206
  Serious: Yes (Hospitalization)
  Sender: FDA-Public Use
  Company Number: US-EISAI MEDICAL RESEARCH-EC-2016-013420

PATIENT
  Age: 57 Year
  Sex: Male
  Weight: 175 kg

DRUGS (12)
  1. LENVIMA [Suspect]
     Active Substance: LENVATINIB
     Route: 048
     Dates: start: 20160219, end: 201603
  2. LORAZEPAM. [Concomitant]
     Active Substance: LORAZEPAM
  3. LENVIMA [Suspect]
     Active Substance: LENVATINIB
     Dosage: ALTERNATES BETWEEN 20 MG AND 24 MG
     Route: 048
     Dates: start: 2016, end: 201610
  4. ONDANSETRON [Concomitant]
     Active Substance: ONDANSETRON
  5. LENVIMA [Suspect]
     Active Substance: LENVATINIB
     Route: 048
     Dates: start: 201604, end: 2016
  6. DICLOFENAC [Concomitant]
     Active Substance: DICLOFENAC
  7. LENVIMA [Suspect]
     Active Substance: LENVATINIB
     Route: 048
     Dates: start: 201610
  8. LEVOTHYROXINE. [Concomitant]
     Active Substance: LEVOTHYROXINE
  9. METFORMIN [Concomitant]
     Active Substance: METFORMIN HYDROCHLORIDE
  10. FUROSEMIDE. [Concomitant]
     Active Substance: FUROSEMIDE
  11. LENVIMA [Suspect]
     Active Substance: LENVATINIB
     Indication: THYROID CANCER
     Route: 048
     Dates: start: 20151223, end: 20160107
  12. CALCIUM [Concomitant]
     Active Substance: CALCIUM

REACTIONS (19)
  - Fall [Recovered/Resolved]
  - Throat tightness [Unknown]
  - Pharyngeal oedema [Recovered/Resolved]
  - Neck pain [Unknown]
  - Acne [Unknown]
  - Dry skin [Recovering/Resolving]
  - Malaise [Not Recovered/Not Resolved]
  - Dyspnoea [Recovered/Resolved]
  - Oropharyngeal pain [Unknown]
  - Increased upper airway secretion [Unknown]
  - Chest discomfort [Not Recovered/Not Resolved]
  - Pyrexia [Recovered/Resolved]
  - Tongue discomfort [Unknown]
  - Testicular pain [Not Recovered/Not Resolved]
  - Pain in extremity [Recovered/Resolved]
  - Haemoptysis [Not Recovered/Not Resolved]
  - Musculoskeletal pain [Unknown]
  - Inflammation [Not Recovered/Not Resolved]
  - Abdominal pain [Not Recovered/Not Resolved]

NARRATIVE: CASE EVENT DATE: 201601
